FAERS Safety Report 25772358 (Version 2)
Quarter: 2025Q4

REPORT INFORMATION
  Report Type: Spontaneous
  Country: US (occurrence: US)
  Receive Date: 20250908
  Receipt Date: 20251001
  Transmission Date: 20260119
  Serious: No
  Sender: SANOFI AVENTIS
  Company Number: US-SA-2025SA263098

PATIENT
  Age: 31 Year
  Sex: Male

DRUGS (2)
  1. ALPROLIX [Suspect]
     Active Substance: EFTRENONACOG ALFA
     Indication: Factor IX deficiency
     Dosage: 4615 IU (4154-5076) SLOW IV PUSH , QW
     Route: 042
     Dates: start: 202305
  2. ALPROLIX [Suspect]
     Active Substance: EFTRENONACOG ALFA
     Indication: Factor IX deficiency
     Dosage: 4615 IU (4154-5076) SLOW IV PUSH , QW
     Route: 042
     Dates: start: 202305

REACTIONS (1)
  - Haemorrhage [Unknown]

NARRATIVE: CASE EVENT DATE: 20250801
